FAERS Safety Report 6875812-5 (Version None)
Quarter: 2010Q3

REPORT INFORMATION
  Report Type: 
  Country: None (occurrence: None)
  Receive Date: 20100727
  Receipt Date: 20100721
  Transmission Date: 20110219
  Serious: Yes (Disabling, Other)
  Sender: FDA-Public Use
  Company Number: US-ASTRAZENECA-2008UW15675

PATIENT
  Age: 19136 Day
  Sex: Male
  Weight: 113.4 kg

DRUGS (6)
  1. SEROQUEL [Suspect]
     Indication: BIPOLAR DISORDER
     Dosage: VARIOUS DOSES INCLUDING BUT NOT LIMITED TO 300 MG TWICE PER DAY
     Route: 048
     Dates: start: 20031003, end: 20070615
  2. SEROQUEL [Suspect]
     Indication: DEPRESSION
     Dosage: VARIOUS DOSES INCLUDING BUT NOT LIMITED TO 300 MG TWICE PER DAY
     Route: 048
     Dates: start: 20031003, end: 20070615
  3. THORAZINE [Concomitant]
  4. CELEXA [Concomitant]
     Dosage: 40 MG THREE TABLETS AT NIGHT
  5. LOPRESSOR [Concomitant]
     Dosage: 25 MG
  6. TRAZODONE [Concomitant]
     Dosage: 300 MG

REACTIONS (6)
  - ASTHMA [None]
  - BLOOD CHOLESTEROL INCREASED [None]
  - CARDIAC DISORDER [None]
  - DIABETES MELLITUS [None]
  - MYOCARDIAL INFARCTION [None]
  - PNEUMONIA [None]
